FAERS Safety Report 8469532-3 (Version None)
Quarter: 2012Q2

REPORT INFORMATION
  Report Type: 
  Country: None (occurrence: None)
  Receive Date: 20120626
  Receipt Date: 20120620
  Transmission Date: 20120825
  Serious: Yes (Death, Life-Threatening, Hospitalization, Other)
  Sender: FDA-Public Use
  Company Number: JP-JNJFOC-20091005087

PATIENT
  Sex: Female
  Weight: 60 kg

DRUGS (16)
  1. DOXORUBICIN HCL [Suspect]
     Indication: FALLOPIAN TUBE CANCER
     Dosage: CYCLE 1
     Route: 042
     Dates: start: 20090716, end: 20090716
  2. GENTAMICIN SULFATE [Concomitant]
     Indication: PALMAR-PLANTAR ERYTHRODYSAESTHESIA SYNDROME
     Route: 061
     Dates: start: 20090907
  3. DOXORUBICIN HCL [Suspect]
     Dosage: CYCLE 3
     Route: 042
     Dates: start: 20090910, end: 20090910
  4. HACHIAZULE [Concomitant]
     Indication: PROPHYLAXIS
     Route: 049
     Dates: start: 20090731, end: 20090831
  5. ANDERM [Concomitant]
     Indication: PALMAR-PLANTAR ERYTHRODYSAESTHESIA SYNDROME
     Route: 061
     Dates: start: 20090831, end: 20090906
  6. DOXORUBICIN HCL [Suspect]
     Dosage: CYCLE 2
     Route: 042
     Dates: start: 20090812, end: 20090812
  7. DOXORUBICIN HCL [Suspect]
     Dosage: CYCLE 3
     Route: 042
     Dates: start: 20090910, end: 20090910
  8. ESTRADIOL [Concomitant]
     Indication: OVARIAN FAILURE POSTOPERATIVE
     Route: 048
     Dates: start: 20090728
  9. VITANEURIN [Concomitant]
     Route: 048
     Dates: start: 20090912, end: 20090918
  10. DOXORUBICIN HCL [Suspect]
     Dosage: CYCLE 2
     Route: 042
     Dates: start: 20090812, end: 20090812
  11. DOXORUBICIN HCL [Suspect]
     Indication: OVARIAN CANCER RECURRENT
     Dosage: CYCLE 1
     Route: 042
     Dates: start: 20090716, end: 20090716
  12. AZUNOL [Concomitant]
     Indication: PALMAR-PLANTAR ERYTHRODYSAESTHESIA SYNDROME
     Route: 061
     Dates: start: 20090831, end: 20090906
  13. HICEE [Concomitant]
     Route: 048
     Dates: start: 20090912, end: 20091011
  14. KENALOG [Concomitant]
     Route: 049
     Dates: start: 20090912
  15. MYSER [Concomitant]
     Indication: PALMAR-PLANTAR ERYTHRODYSAESTHESIA SYNDROME
     Route: 061
     Dates: start: 20090907
  16. AMOBAN [Concomitant]
     Route: 048
     Dates: start: 20090912

REACTIONS (2)
  - FALLOPIAN TUBE CANCER [None]
  - INTERSTITIAL LUNG DISEASE [None]
